FAERS Safety Report 9913465 (Version 2)
Quarter: 2014Q1

REPORT INFORMATION
  Report Type: Spontaneous
  Country: US (occurrence: US)
  Receive Date: 20140220
  Receipt Date: 20140325
  Transmission Date: 20141002
  Serious: Yes (Other)
  Sender: FDA-Public Use
  Company Number: US-SA-2014SA020784

PATIENT
  Age: 69 Year
  Sex: Female

DRUGS (11)
  1. LANTUS SOLOSTAR [Suspect]
     Indication: TYPE 2 DIABETES MELLITUS
     Dosage: DOSE:40 UNIT(S)
     Route: 058
     Dates: start: 2007
  2. LANTUS SOLOSTAR [Suspect]
     Indication: TYPE 2 DIABETES MELLITUS
     Dosage: DOSE:25 UNIT(S)
     Route: 058
     Dates: start: 2014
  3. LANTUS SOLOSTAR [Suspect]
     Indication: TYPE 2 DIABETES MELLITUS
     Dosage: DOSE:15 UNIT(S)
     Route: 058
     Dates: start: 2014
  4. BYETTA [Suspect]
     Route: 065
     Dates: start: 2008
  5. SOLOSTAR [Concomitant]
     Dates: start: 2007
  6. METFORMIN [Concomitant]
     Dosage: 12 HR BEFORE BREAKFAST AND DINNER
  7. LIPITOR [Concomitant]
  8. SYNTHROID [Concomitant]
  9. ASPIRIN [Concomitant]
  10. ANASTROZOLE [Concomitant]
  11. ENABLEX [Concomitant]

REACTIONS (3)
  - Parathyroid tumour [Unknown]
  - Blood glucose abnormal [Unknown]
  - Hypoacusis [Unknown]
